FAERS Safety Report 8767202 (Version 1)
Quarter: 2012Q4

REPORT INFORMATION
  Report Type: 
  Country: JP (occurrence: US)
  Receive Date: 20120904
  Receipt Date: 20120904
  Transmission Date: 20130627
  Serious: Yes (Other)
  Sender: FDA-Public Use
  Company Number: US-JNJFOC-20100706576

PATIENT
  Age: 76 None
  Sex: Male
  Weight: 67.13 kg

DRUGS (2)
  1. LEVAQUIN [Suspect]
     Indication: PROSTATE INFECTION
     Dosage: for three weeks
     Route: 048
  2. LEVAQUIN [Suspect]
     Indication: BACTERIAL INFECTION
     Dosage: for three weeks
     Route: 048

REACTIONS (2)
  - Tendon rupture [Recovering/Resolving]
  - Exostosis [Unknown]
